FAERS Safety Report 8218783-1 (Version None)
Quarter: 2012Q1

REPORT INFORMATION
  Report Type: 
  Country: None (occurrence: None)
  Receive Date: 20120319
  Receipt Date: 20120313
  Transmission Date: 20120608
  Serious: Yes (Death, Other)
  Sender: FDA-Public Use
  Company Number: PHHY2012VE022605

PATIENT
  Sex: Female

DRUGS (3)
  1. EVISTA [Concomitant]
  2. PLAVIX [Concomitant]
  3. EXELON [Suspect]
     Indication: DEMENTIA ALZHEIMER'S TYPE

REACTIONS (2)
  - LUNG DISORDER [None]
  - PNEUMONIA [None]
